FAERS Safety Report 5779486-6 (Version None)
Quarter: 2008Q2

REPORT INFORMATION
  Report Type: 
  Country: None (occurrence: None)
  Receive Date: 20080619
  Receipt Date: 20080610
  Transmission Date: 20081010
  Serious: Yes (Other)
  Sender: FDA-Public Use
  Company Number: ES-ELI_LILLY_AND_COMPANY-ES200806002743

PATIENT
  Age: 72 Year
  Sex: Male

DRUGS (7)
  1. CYMBALTA [Suspect]
     Indication: DEPRESSION
     Dosage: 60 MG, UNKNOWN
     Route: 048
     Dates: start: 20071001, end: 20080601
  2. CYMBALTA [Suspect]
     Dosage: 30 MG, UNKNOWN
     Route: 048
     Dates: start: 20080601
  3. ALLOPURINOL [Concomitant]
     Dosage: UNK, UNKNOWN
     Route: 065
  4. LIMOVAN [Concomitant]
     Dosage: UNK, UNKNOWN
     Route: 065
  5. ALOPURINOL [Concomitant]
     Indication: HYPERURICAEMIA
     Dosage: UNK, UNKNOWN
     Route: 065
  6. ANTIHYPERTENSIVES [Concomitant]
     Indication: HYPERTENSION
     Dosage: UNK, UNKNOWN
     Route: 065
  7. ZOLPIDEM [Concomitant]
     Indication: INSOMNIA
     Dosage: UNK, UNKNOWN
     Route: 065

REACTIONS (1)
  - NEUROGENIC BLADDER [None]
